FAERS Safety Report 21699659 (Version 2)
Quarter: 2023Q1

REPORT INFORMATION
  Report Type: Report from Study
  Country: CA (occurrence: CA)
  Receive Date: 20221208
  Receipt Date: 20230131
  Transmission Date: 20230418
  Serious: Yes (Other)
  Sender: FDA-Public Use
  Company Number: CA-UCBSA-2022069412

PATIENT
  Sex: Female

DRUGS (1)
  1. BRIVARACETAM [Suspect]
     Active Substance: BRIVARACETAM
     Indication: Partial seizures
     Dosage: 50 MILLIGRAM, 2X/DAY (BID)
     Route: 048
     Dates: start: 20220101

REACTIONS (5)
  - Generalised tonic-clonic seizure [Unknown]
  - Partial seizures [Unknown]
  - Hypersensitivity [Unknown]
  - Rash [Unknown]
  - Oropharyngeal discomfort [Unknown]
